FAERS Safety Report 5264544-5 (Version None)
Quarter: 2007Q1

REPORT INFORMATION
  Report Type: 
  Country: None (occurrence: None)
  Receive Date: 20061213
  Receipt Date: 20040714
  Transmission Date: 20070707
  Serious: Yes (Other)
  Sender: FDA-Public Use
  Company Number: 2004UW14506

PATIENT
  Age: 72 Year
  Sex: Female

DRUGS (1)
  1. IRESSA [Suspect]

REACTIONS (6)
  - DIARRHOEA [None]
  - DRY SKIN [None]
  - DYSURIA [None]
  - PRURITUS [None]
  - STOMATITIS [None]
  - VULVAL DISORDER [None]
